FAERS Safety Report 12505916 (Version 1)
Quarter: 2016Q2

REPORT INFORMATION
  Report Type: Spontaneous
  Country: US (occurrence: US)
  Receive Date: 20160628
  Receipt Date: 20160628
  Transmission Date: 20160815
  Serious: No
  Sender: FDA-Public Use
  Company Number: US-KVK-TECH, INC-1054378

PATIENT
  Age: 67 Year
  Sex: Female

DRUGS (21)
  1. SIMVASTATIN. [Concomitant]
     Active Substance: SIMVASTATIN
  2. FERROUS SULFATE. [Concomitant]
     Active Substance: FERROUS SULFATE
  3. VITAMIN D3 [Concomitant]
     Active Substance: CHOLECALCIFEROL
  4. ALBUTEROL. [Concomitant]
     Active Substance: ALBUTEROL
  5. DULOXETINE. [Concomitant]
     Active Substance: DULOXETINE
  6. SUPPLEMENT- CA 500MG, ZN 10MG, MG UNK, MN 1MG, B6 10MG, D3 800 IU [Concomitant]
  7. MONTELUKAST [Concomitant]
     Active Substance: MONTELUKAST SODIUM
  8. OXYCODONE HYDROCHLORIDE. [Suspect]
     Active Substance: OXYCODONE HYDROCHLORIDE
     Indication: PAIN
     Route: 048
     Dates: start: 2015, end: 2016
  9. IBUPROFEN. [Concomitant]
     Active Substance: IBUPROFEN
  10. VALERIAN ROOT [Concomitant]
     Active Substance: VALERIAN
  11. VITAMIN B12 [Concomitant]
     Active Substance: CYANOCOBALAMIN
     Route: 060
  12. LASIX [Concomitant]
     Active Substance: FUROSEMIDE
  13. CLEAR TINNITUS HOMEOPATHIC FORMULA [Concomitant]
     Route: 048
  14. POTASSIUM GLUCONATE [Concomitant]
     Active Substance: POTASSIUM GLUCONATE
  15. METOPROLOL SUCCINATE. [Concomitant]
     Active Substance: METOPROLOL SUCCINATE
  16. ESTRACE [Concomitant]
     Active Substance: ESTRADIOL
  17. CLEAR SINUS + EAR HOMEOPATHIC FORMULA [Concomitant]
     Route: 048
  18. GABAPENTIN. [Concomitant]
     Active Substance: GABAPENTIN
     Route: 048
  19. ASPIRIN. [Concomitant]
     Active Substance: ASPIRIN
  20. XANAX [Concomitant]
     Active Substance: ALPRAZOLAM
  21. ALENDRONATE [Concomitant]
     Active Substance: ALENDRONATE SODIUM

REACTIONS (7)
  - Renal impairment [Recovered/Resolved]
  - Drug ineffective [Recovered/Resolved]
  - Amnesia [Recovered/Resolved]
  - Hallucination [Recovered/Resolved]
  - Chromaturia [Recovered/Resolved]
  - Dizziness [Recovered/Resolved]
  - Abnormal behaviour [Recovered/Resolved]

NARRATIVE: CASE EVENT DATE: 2015
